FAERS Safety Report 25597075 (Version 2)
Quarter: 2025Q3

REPORT INFORMATION
  Report Type: Spontaneous
  Country: US (occurrence: US)
  Receive Date: 20250723
  Receipt Date: 20250904
  Transmission Date: 20251020
  Serious: No
  Sender: INCYTE
  Company Number: US-EVENT-003608

PATIENT

DRUGS (4)
  1. JAKAFI [Suspect]
     Active Substance: RUXOLITINIB
     Indication: Myositis
     Route: 065
  2. JAKAFI [Suspect]
     Active Substance: RUXOLITINIB
     Indication: Myasthenia gravis
  3. JAKAFI [Suspect]
     Active Substance: RUXOLITINIB
     Indication: Myocarditis
  4. JAKAFI [Suspect]
     Active Substance: RUXOLITINIB
     Indication: Myasthenic syndrome

REACTIONS (2)
  - Dysphagia [Unknown]
  - Off label use [Not Recovered/Not Resolved]
